FAERS Safety Report 4361598-5 (Version None)
Quarter: 2004Q2

REPORT INFORMATION
  Report Type: 
  Country: None (occurrence: None)
  Receive Date: 20040519
  Receipt Date: 20040519
  Transmission Date: 20050107
  Serious: Yes (Hospitalization)
  Sender: FDA-Public Use
  Company Number: None

PATIENT
  Age: 34 Year
  Sex: Male

DRUGS (12)
  1. LINEZOLID [Suspect]
     Indication: GLYCOPEPTIDE ANTIBIOTIC RESISTANT ENTEROCOCCAL INFECTION
     Dosage: 600 MG BID IV
     Route: 042
  2. HEPARIN [Concomitant]
  3. WARFARIN SODIUM [Concomitant]
  4. RENAGEL [Concomitant]
  5. METOPROLOL [Concomitant]
  6. ENALAPRIL MALEATE [Concomitant]
  7. ACETAMINOPHEN [Concomitant]
  8. ATORVASTATIN CALCIUM [Concomitant]
  9. DULCOLAX [Concomitant]
  10. ACYCLOVIR [Concomitant]
  11. NIFEDIPINE [Concomitant]
  12. NEPHROCAP [Concomitant]

REACTIONS (4)
  - DIALYSIS [None]
  - ENDOCARDITIS [None]
  - PANCYTOPENIA [None]
  - SEPTIC EMBOLUS [None]
